FAERS Safety Report 24013636 (Version 1)
Quarter: 2024Q2

REPORT INFORMATION
  Report Type: Spontaneous
  Country: NL (occurrence: NL)
  Receive Date: 20240626
  Receipt Date: 20240626
  Transmission Date: 20240715
  Serious: Yes (Other)
  Sender: FDA-Public Use
  Company Number: NL-MLMSERVICE-20240508-PI053889-00270-1

PATIENT
  Age: 58 Year
  Sex: Male

DRUGS (1)
  1. PREDNISOLONE [Suspect]
     Active Substance: PREDNISOLONE
     Indication: Vogt-Koyanagi-Harada disease
     Dosage: 80 MILLIGRAM, ONCE A DAY
     Route: 048
     Dates: start: 2018, end: 2018

REACTIONS (3)
  - Condition aggravated [Recovered/Resolved]
  - Subretinal fluid [Recovered/Resolved]
  - Drug ineffective [Unknown]

NARRATIVE: CASE EVENT DATE: 20180101
